FAERS Safety Report 19188488 (Version 8)
Quarter: 2023Q1

REPORT INFORMATION
  Report Type: Report from Study
  Country: US (occurrence: None)
  Receive Date: 20210428
  Receipt Date: 20230331
  Transmission Date: 20230417
  Serious: Yes (Hospitalization)
  Sender: FDA-Public Use
  Company Number: US-ROCHE-2815637

PATIENT
  Age: 49 Year
  Sex: Female
  Weight: 72.5 kg

DRUGS (20)
  1. ATEZOLIZUMAB [Suspect]
     Active Substance: ATEZOLIZUMAB
     Indication: Pancreatic carcinoma metastatic
     Dosage: ON 14/APR/2021, SHE RECEIVED MOST RECENT DOSE OF ATEZOLIZUMAB (1680 MG) PRIOR TO ONSET OF SERIOUS AD
     Route: 041
     Dates: start: 20210316
  2. GEMCITABINE [Suspect]
     Active Substance: GEMCITABINE
     Indication: Pancreatic carcinoma metastatic
     Dosage: ON 14/APR/2021, SHE RECEIVED MOST RECENT DOSE OF GEMCITABINE (1000 MG) PRIOR TO ONSET OF SERIOUS ADV
     Route: 042
     Dates: start: 20210316
  3. PACLITAXEL [Suspect]
     Active Substance: PACLITAXEL
     Indication: Pancreatic carcinoma metastatic
     Dosage: ON 14/APR/2021, SHE RECEIVED MOST RECENT DOSE OF ALBUMIN BOUND PACLITAXEL (125 MG) PRIOR TO ONSET OF
     Route: 042
     Dates: start: 20210316
  4. TOCILIZUMAB [Suspect]
     Active Substance: TOCILIZUMAB
     Indication: Pancreatic carcinoma metastatic
     Dosage: ON 14/APR/2021, SHE RECEIVED MOST RECENT DOSE OF TOCILIZUMAB (8 MG) PRIOR TO ONSET OF SERIOUS ADVERS
     Route: 042
     Dates: start: 20210316
  5. ATIVAN [Concomitant]
     Active Substance: LORAZEPAM
     Indication: Anxiety
     Route: 048
     Dates: start: 20210316, end: 20210330
  6. ATIVAN [Concomitant]
     Active Substance: LORAZEPAM
     Indication: Decreased appetite
  7. ONDANSETRON [Concomitant]
     Active Substance: ONDANSETRON
     Indication: Nausea
     Route: 048
     Dates: start: 20210316, end: 20210713
  8. PROCHLORPERAZINE [Concomitant]
     Active Substance: PROCHLORPERAZINE
     Indication: Nausea
     Route: 048
     Dates: start: 20210316, end: 20210713
  9. AMLODIPINE [Concomitant]
     Active Substance: AMLODIPINE BESYLATE
     Indication: Hypertension
     Route: 048
     Dates: start: 20200101
  10. ACETAMINOPHEN [Concomitant]
     Active Substance: ACETAMINOPHEN
     Indication: Pain
     Route: 048
     Dates: start: 20210316
  11. MIRALAX [Concomitant]
     Active Substance: POLYETHYLENE GLYCOL 3350
     Indication: Constipation
     Dosage: 1 UNKNOWN
     Route: 048
     Dates: start: 20210319
  12. SENNA [Concomitant]
     Active Substance: SENNA LEAF\SENNOSIDES\SENNOSIDES A AND B
     Indication: Constipation
     Route: 048
     Dates: start: 20210319
  13. OMEPRAZOLE [Concomitant]
     Active Substance: OMEPRAZOLE
     Route: 048
     Dates: start: 20210319, end: 20210716
  14. PANCRELIPASE [Concomitant]
     Active Substance: PANCRELIPASE
     Dosage: MEDICATION DOSE: 2 UNKNOWN
     Route: 048
     Dates: start: 20210319, end: 20210716
  15. ADVIL [Concomitant]
     Active Substance: IBUPROFEN
     Indication: Pain
     Route: 048
     Dates: start: 20210401
  16. TRAMADOL [Concomitant]
     Active Substance: TRAMADOL
     Indication: Pain
     Route: 048
     Dates: start: 20210412
  17. MARINOL [Concomitant]
     Active Substance: DRONABINOL
     Route: 048
     Dates: start: 20210412, end: 20210511
  18. CLARITIN [Concomitant]
     Active Substance: LORATADINE
     Indication: Bone pain
     Route: 048
     Dates: start: 20210401
  19. TRAMADOL [Concomitant]
     Active Substance: TRAMADOL
     Indication: Pain
     Route: 048
     Dates: start: 20210519, end: 20210617
  20. TRAMADOL [Concomitant]
     Active Substance: TRAMADOL
     Route: 048
     Dates: start: 20210630, end: 20210729

REACTIONS (1)
  - Peripheral sensory neuropathy [Recovered/Resolved]

NARRATIVE: CASE EVENT DATE: 20210419
